FAERS Safety Report 7968466 (Version 2)
Quarter: 2013Q4

REPORT INFORMATION
  Report Type: Report from Study
  Country: CA (occurrence: CA)
  Receive Date: 20110601
  Receipt Date: 20131008
  Transmission Date: 20140711
  Serious: Yes (Death, Other)
  Sender: FDA-Public Use
  Company Number: PHHY2011CA46657

PATIENT
  Age: 87 Year
  Sex: Female

DRUGS (9)
  1. ACLASTA [Suspect]
     Indication: OSTEOPOROSIS
     Dosage: UNK UKN, UNK
     Route: 042
     Dates: start: 20100825
  2. LASIX [Concomitant]
     Dosage: UNK UKN, UNK
  3. COVERSYL [Concomitant]
  4. LYRICA [Concomitant]
  5. CALCIUM WITH VITAMIN D [Concomitant]
  6. ACETYLSALICYLIC ACID [Concomitant]
  7. NORVASC [Concomitant]
  8. MONOCOR [Concomitant]
  9. COUMADIN [Concomitant]

REACTIONS (5)
  - Death [Fatal]
  - Loss of consciousness [Unknown]
  - Pulmonary alveolar haemorrhage [Unknown]
  - Renal failure acute [Unknown]
  - Atrial fibrillation [Unknown]
